FAERS Safety Report 23630803 (Version 1)
Quarter: 2024Q1

REPORT INFORMATION
  Report Type: Spontaneous
  Country: CH (occurrence: CH)
  Receive Date: 20240314
  Receipt Date: 20240314
  Transmission Date: 20240410
  Serious: Yes (Hospitalization, Other)
  Sender: FDA-Public Use
  Company Number: None

PATIENT

DRUGS (8)
  1. LAMICTAL [Suspect]
     Active Substance: LAMOTRIGINE
     Indication: Product used for unknown indication
     Dosage: 100 MG, BID
     Route: 064
     Dates: start: 20230821, end: 202309
  2. LITHIUM SULFATE [Suspect]
     Active Substance: LITHIUM SULFATE
     Indication: Product used for unknown indication
     Dosage: 24 MMOL, QD (THE MORNING)
     Route: 064
     Dates: start: 202309, end: 20231120
  3. LITHIUM SULFATE [Suspect]
     Active Substance: LITHIUM SULFATE
     Dosage: 18 MMOL, QD (THE EVENING)
     Route: 064
     Dates: start: 202309, end: 20231120
  4. QUETIAPINE [Suspect]
     Active Substance: QUETIAPINE
     Indication: Product used for unknown indication
     Dosage: 200 MG, QD (MORNING)
     Route: 064
     Dates: start: 2023
  5. QUETIAPINE [Suspect]
     Active Substance: QUETIAPINE
     Dosage: 400 MG, QD (EVENING)
     Route: 064
     Dates: start: 2023
  6. LORAZEPAM [Suspect]
     Active Substance: LORAZEPAM
     Indication: Product used for unknown indication
     Dosage: UNK (AS NECESSARY)
     Route: 064
  7. HALDOL [Suspect]
     Active Substance: HALOPERIDOL
     Indication: Product used for unknown indication
     Dosage: 2 MG, QD (MORNING)
     Route: 064
  8. HALDOL [Suspect]
     Active Substance: HALOPERIDOL
     Dosage: 3 MG, QD (EVENING)
     Route: 064

REACTIONS (4)
  - Polyhydramnios [Recovered/Resolved]
  - Foetal macrosomia [Recovered/Resolved]
  - Foetal exposure during pregnancy [Recovered/Resolved]
  - Foetal hypokinesia [Recovered/Resolved]

NARRATIVE: CASE EVENT DATE: 20230101
